FAERS Safety Report 4512837-9 (Version None)
Quarter: 2004Q4

REPORT INFORMATION
  Report Type: 
  Country: None (occurrence: None)
  Receive Date: 20041119
  Receipt Date: 20041119
  Transmission Date: 20050328
  Serious: Yes (Hospitalization, Disabling, Other)
  Sender: FDA-Public Use
  Company Number: None

PATIENT
  Age: 49 Year
  Sex: Male
  Weight: 74.8435 kg

DRUGS (2)
  1. TOPAMAX [Suspect]
     Indication: BIPOLAR DISORDER
     Dosage: ONE A DAY
     Dates: start: 20030715, end: 20040519
  2. LISONPRIL [Concomitant]

REACTIONS (3)
  - ABNORMAL BEHAVIOUR [None]
  - BIPOLAR DISORDER [None]
  - CONDITION AGGRAVATED [None]
